FAERS Safety Report 9600143 (Version 1)
Quarter: 2013Q4

REPORT INFORMATION
  Report Type: Spontaneous
  Country: US (occurrence: US)
  Receive Date: 20131004
  Receipt Date: 20131004
  Transmission Date: 20140711
  Serious: No
  Sender: FDA-Public Use
  Company Number: US-AMGEN-USASP2013033116

PATIENT
  Age: 55 Year
  Sex: Male
  Weight: 117.91 kg

DRUGS (8)
  1. ENBREL [Suspect]
     Indication: PSORIATIC ARTHROPATHY
     Dosage: 1 INJECTION SUBCUTANEOUSLY TWICE WEEKLY
     Route: 058
     Dates: end: 201303
  2. RESTORIL                           /00054301/ [Concomitant]
     Dosage: 7.5 MG, UNK
  3. EFFEXOR [Concomitant]
     Dosage: 25 MG, UNK
  4. PREDNISONE [Concomitant]
     Dosage: 1 MG, UNK
  5. MULTIVITAMINS, PLAIN [Concomitant]
     Dosage: UNK
  6. VITAMIN B12                        /00056201/ [Concomitant]
     Dosage: 1000 CR
  7. CALCIUM [Concomitant]
     Dosage: 1200 CHW
  8. VITAMIN D                          /00107901/ [Concomitant]
     Dosage: 400 UNIT, UNK

REACTIONS (1)
  - Drug ineffective [Unknown]
